FAERS Safety Report 12635620 (Version 1)
Quarter: 2016Q3

REPORT INFORMATION
  Report Type: Spontaneous
  Country: US (occurrence: US)
  Receive Date: 20160809
  Receipt Date: 20160809
  Transmission Date: 20161109
  Serious: No
  Sender: FDA-Public Use
  Company Number: US-TARO-2016TAR00010

PATIENT
  Age: 32 Year
  Sex: Male
  Weight: 56.69 kg

DRUGS (3)
  1. SANADA 1000 SUPPOSITORY [Concomitant]
  2. UNSPECIFIED YEAST INFECTION MEDICATION [Concomitant]
  3. TERBINAFINE HCL CREAM 1% (JOCK ITCH) [Suspect]
     Active Substance: TERBINAFINE HYDROCHLORIDE
     Indication: FUNGAL INFECTION
     Dosage: UNK UNK, TWICE
     Route: 061
     Dates: start: 20151203, end: 20151204

REACTIONS (3)
  - Blister [Recovering/Resolving]
  - Drug ineffective [Not Recovered/Not Resolved]
  - Skin discolouration [Recovering/Resolving]

NARRATIVE: CASE EVENT DATE: 201512
